FAERS Safety Report 21439905 (Version 1)
Quarter: 2022Q4

REPORT INFORMATION
  Report Type: Other
  Country: DE (occurrence: None)
  Receive Date: 20221011
  Receipt Date: 20221011
  Transmission Date: 20230113
  Serious: Yes (Other)
  Sender: FDA-Public Use
  Company Number: DE-Merck Healthcare KGaA-9356738

PATIENT
  Sex: Female

DRUGS (2)
  1. CLADRIBINE [Suspect]
     Active Substance: CLADRIBINE
     Indication: Multiple sclerosis
     Dosage: CYCLE ONE THERAPY
  2. CLADRIBINE [Suspect]
     Active Substance: CLADRIBINE
     Dosage: CYCLE TWO THERAPY

REACTIONS (2)
  - Abortion spontaneous [Recovered/Resolved]
  - Maternal exposure before pregnancy [Recovered/Resolved]
